FAERS Safety Report 15968943 (Version 3)
Quarter: 2019Q3

REPORT INFORMATION
  Report Type: Spontaneous
  Country: KR (occurrence: KR)
  Receive Date: 20190215
  Receipt Date: 20190729
  Transmission Date: 20191004
  Serious: Yes (Death, Other)
  Sender: FDA-Public Use
  Company Number: KR-SA-2019SA044191

PATIENT
  Age: 49 Year
  Sex: Male

DRUGS (2)
  1. LEMTRADA [Suspect]
     Active Substance: ALEMTUZUMAB
     Indication: RELAPSING-REMITTING MULTIPLE SCLEROSIS
     Dosage: 12 MG, QD
     Route: 041
     Dates: start: 20160718, end: 20160722
  2. LEMTRADA [Suspect]
     Active Substance: ALEMTUZUMAB
     Dosage: 12 MG, QD
     Route: 041
     Dates: start: 20170712, end: 20170714

REACTIONS (6)
  - Nasopharyngitis [Unknown]
  - Dyspnoea [Not Recovered/Not Resolved]
  - Completed suicide [Fatal]
  - Influenza like illness [Unknown]
  - Herpes zoster [Unknown]
  - Varicella virus test positive [Unknown]

NARRATIVE: CASE EVENT DATE: 2018
